FAERS Safety Report 14938567 (Version 1)
Quarter: 2018Q2

REPORT INFORMATION
  Report Type: Spontaneous
  Country: US (occurrence: US)
  Receive Date: 20180525
  Receipt Date: 20180525
  Transmission Date: 20180711
  Serious: No
  Sender: FDA-Public Use
  Company Number: US-JNJFOC-20180500988

PATIENT
  Age: 65 Year
  Sex: Female
  Weight: 55.34 kg

DRUGS (2)
  1. TYLENOL 8 HR ARTHRITIS PAIN [Suspect]
     Active Substance: ACETAMINOPHEN
     Route: 048
  2. TYLENOL 8 HR ARTHRITIS PAIN [Suspect]
     Active Substance: ACETAMINOPHEN
     Indication: ARTHRALGIA
     Route: 048
     Dates: start: 20180428, end: 20180428

REACTIONS (4)
  - Mydriasis [Recovering/Resolving]
  - Insomnia [Recovering/Resolving]
  - Feeling jittery [Recovering/Resolving]
  - Euphoric mood [Recovered/Resolved]

NARRATIVE: CASE EVENT DATE: 201804
